FAERS Safety Report 14276439 (Version 5)
Quarter: 2019Q3

REPORT INFORMATION
  Report Type: Report from Study
  Country: BR (occurrence: BR)
  Receive Date: 20171212
  Receipt Date: 20190827
  Transmission Date: 20191004
  Serious: Yes (Other)
  Sender: FDA-Public Use
  Company Number: BR-ROCHE-2034070

PATIENT
  Sex: Female
  Weight: 43 kg

DRUGS (1)
  1. ACTEMRA [Suspect]
     Active Substance: TOCILIZUMAB
     Indication: RHEUMATOID ARTHRITIS
     Dosage: LATEST INFUSION WAS ON 23-OCT-2017, 4.5ML
     Route: 042
     Dates: start: 20150219

REACTIONS (4)
  - Erythema [Recovered/Resolved]
  - Pyrexia [Recovered/Resolved]
  - Pruritus [Recovered/Resolved]
  - Influenza [Recovered/Resolved]
